FAERS Safety Report 12256246 (Version 1)
Quarter: 2016Q2

REPORT INFORMATION
  Report Type: Spontaneous
  Country: US (occurrence: None)
  Receive Date: 20160411
  Receipt Date: 20160411
  Transmission Date: 20160815
  Serious: Yes (Hospitalization)
  Sender: FDA-Public Use
  Company Number: None

PATIENT
  Age: 48 Year
  Sex: Female
  Weight: 61.24 kg

DRUGS (3)
  1. TOPAMAX [Suspect]
     Active Substance: TOPIRAMATE
     Indication: HEADACHE
     Dosage: IN THE MORNING TAKEN BY MOUTH
     Route: 048
     Dates: start: 20150930, end: 20151212
  2. MIROPEX [Concomitant]
  3. SUMATRIPTAN. [Concomitant]
     Active Substance: SUMATRIPTAN

REACTIONS (4)
  - Economic problem [None]
  - Dyspnoea [None]
  - Chest pain [None]
  - Suicidal ideation [None]

NARRATIVE: CASE EVENT DATE: 20151212
